FAERS Safety Report 10025927 (Version 1)
Quarter: 2014Q1

REPORT INFORMATION
  Report Type: Spontaneous
  Country: US (occurrence: US)
  Receive Date: 20140320
  Receipt Date: 20140320
  Transmission Date: 20141002
  Serious: Yes (Hospitalization)
  Sender: FDA-Public Use
  Company Number: US-JNJFOC-20140309278

PATIENT
  Age: 55 Year
  Sex: Female

DRUGS (11)
  1. INVOKANA [Suspect]
     Indication: DIABETES MELLITUS
     Route: 048
  2. CHEMOTHERAPY [Concomitant]
     Indication: LUNG NEOPLASM MALIGNANT
  3. LEVEMIR [Concomitant]
  4. NEURONTIN [Concomitant]
  5. PROTONIX [Concomitant]
  6. ASPIRIN [Concomitant]
  7. VITAMIN B12 [Concomitant]
  8. FOLIC ACID [Concomitant]
  9. LORAZEPAM [Concomitant]
  10. ZOFRAN [Concomitant]
  11. LOSARTAN [Concomitant]

REACTIONS (2)
  - Myocardial infarction [Unknown]
  - Arteriosclerosis [Unknown]
